FAERS Safety Report 25386368 (Version 1)
Quarter: 2025Q2

REPORT INFORMATION
  Report Type: Spontaneous
  Country: CZ (occurrence: CZ)
  Receive Date: 20250602
  Receipt Date: 20250602
  Transmission Date: 20250717
  Serious: Yes (Life-Threatening, Hospitalization, Disabling, Other)
  Sender: BRISTOL-MYERS SQUIBB COMPANY
  Company Number: None

PATIENT
  Age: 77 Year
  Sex: Male
  Weight: 93 kg

DRUGS (1)
  1. OPDUALAG [Suspect]
     Active Substance: NIVOLUMAB\RELATLIMAB-RMBW
     Indication: Product used for unknown indication

REACTIONS (4)
  - Immune-mediated cholestasis [Unknown]
  - Thyroid disorder [Unknown]
  - Immune-mediated myositis [Unknown]
  - Myasthenic syndrome [Unknown]

NARRATIVE: CASE EVENT DATE: 20250501
